FAERS Safety Report 13592919 (Version 3)
Quarter: 2018Q3

REPORT INFORMATION
  Report Type: Report from Study
  Country: CN (occurrence: CN)
  Receive Date: 20170530
  Receipt Date: 20180712
  Transmission Date: 20181010
  Serious: Yes (Other)
  Sender: FDA-Public Use
  Company Number: PHHY2017CN078469

PATIENT
  Age: 31 Year
  Sex: Male

DRUGS (44)
  1. BASILIXIMAB [Suspect]
     Active Substance: BASILIXIMAB
     Indication: IMMUNOSUPPRESSANT DRUG THERAPY
     Dosage: 20 MG, QD
     Route: 065
     Dates: start: 20170207, end: 20170207
  2. PREDNISONE. [Suspect]
     Active Substance: PREDNISONE
     Indication: IMMUNOSUPPRESSANT DRUG THERAPY
     Dosage: 50 MG, QD
     Route: 065
     Dates: start: 20170207, end: 20170207
  3. DOPAMINE [Concomitant]
     Active Substance: DOPAMINE\DOPAMINE HYDROCHLORIDE
     Indication: PRODUCT USED FOR UNKNOWN INDICATION
     Dosage: 5 MG, BID
     Route: 042
     Dates: start: 20170206, end: 20170210
  4. FEBUXOSTAT. [Concomitant]
     Active Substance: FEBUXOSTAT
     Indication: BLOOD URIC ACID INCREASED
     Dosage: 40 MG, QD
     Route: 048
     Dates: start: 20170327, end: 20170410
  5. VITAMIN K1 [Concomitant]
     Active Substance: PHYTONADIONE
     Indication: HAEMOSTASIS
     Dosage: 20 MG, QD
     Route: 042
     Dates: start: 20170208, end: 20170208
  6. HEPARIN SODIUM. [Concomitant]
     Active Substance: HEPARIN SODIUM
     Indication: PRODUCT USED FOR UNKNOWN INDICATION
     Dosage: 1.25 OT, QD
     Route: 058
     Dates: start: 20170204, end: 20170204
  7. FUROSEMIDE. [Concomitant]
     Active Substance: FUROSEMIDE
     Indication: PRODUCT USED FOR UNKNOWN INDICATION
     Dosage: 100 MG, QD
     Route: 042
     Dates: start: 20170204, end: 20170204
  8. FUROSEMIDE. [Concomitant]
     Active Substance: FUROSEMIDE
     Dosage: 80 MG, BID
     Dates: start: 20170206, end: 20170207
  9. ALPROSTADIL. [Concomitant]
     Active Substance: ALPROSTADIL
     Indication: PERIPHERAL VASCULAR DISORDER
     Dosage: 20 MCG, QD
     Route: 065
     Dates: start: 20170205, end: 20170214
  10. ACETYLCYSTEIN [Concomitant]
     Active Substance: ACETYLCYSTEINE
     Indication: PRODUCT USED FOR UNKNOWN INDICATION
     Dosage: 8000 MG, QD
     Route: 042
     Dates: start: 20170205, end: 20170214
  11. GLUTAMINE [Concomitant]
     Active Substance: GLUTAMINE
     Indication: PRODUCT USED FOR UNKNOWN INDICATION
     Dosage: 20000 MG, QD
     Route: 042
     Dates: start: 20170204, end: 20170209
  12. METOPROLOL SUCCINATE. [Concomitant]
     Active Substance: METOPROLOL SUCCINATE
     Indication: HYPERTENSION
     Dosage: 47.5 MG, QD
     Route: 042
     Dates: start: 20170206, end: 20170214
  13. PREDNISONE. [Suspect]
     Active Substance: PREDNISONE
     Dosage: 40 MG, QD
     Route: 065
     Dates: start: 20170208, end: 20170208
  14. PREDNISONE. [Suspect]
     Active Substance: PREDNISONE
     Dosage: 20 MG, QD
     Route: 065
     Dates: start: 20170210, end: 20170210
  15. AMINO ACID [Concomitant]
     Active Substance: AMINO ACIDS
     Indication: PRODUCT USED FOR UNKNOWN INDICATION
     Dosage: 500 ML, QD
     Route: 042
     Dates: start: 20170204, end: 20170209
  16. LEVAMLODIPINE [Concomitant]
     Active Substance: LEVAMLODIPINE
     Indication: HYPERTENSION
     Dosage: 5 MG, QD
     Route: 048
     Dates: start: 20170207, end: 20170208
  17. PHENTOLAMINE MESYLATE. [Concomitant]
     Active Substance: PHENTOLAMINE MESYLATE
     Indication: PRODUCT USED FOR UNKNOWN INDICATION
     Dosage: 5 MG, BID
     Route: 042
     Dates: start: 20170206, end: 20170210
  18. PAMBA [Concomitant]
     Indication: HAEMOSTASIS
     Dosage: 600 MG, QD
     Route: 042
     Dates: start: 20170208, end: 20170208
  19. MYFORTIC [Suspect]
     Active Substance: MYCOPHENOLATE SODIUM
     Indication: RENAL TRANSPLANT
     Dosage: 1440 MG, QD
     Route: 065
     Dates: start: 20170205, end: 20170212
  20. MYFORTIC [Suspect]
     Active Substance: MYCOPHENOLATE SODIUM
     Dosage: 360 MG, QD
     Route: 065
     Dates: start: 20170215, end: 20170215
  21. BASILIXIMAB [Suspect]
     Active Substance: BASILIXIMAB
     Indication: RENAL TRANSPLANT
     Dosage: 20 MG, QD
     Route: 065
     Dates: start: 20170204, end: 20170204
  22. METHYLPREDNISOLONE. [Suspect]
     Active Substance: METHYLPREDNISOLONE
     Indication: IMMUNOSUPPRESSANT DRUG THERAPY
     Dosage: 500 MG, QD
     Route: 065
     Dates: start: 20170204, end: 20170206
  23. TACROLIMUS. [Suspect]
     Active Substance: TACROLIMUS
     Indication: IMMUNOSUPPRESSANT DRUG THERAPY
     Dosage: 6 MG, QD
     Route: 065
     Dates: start: 20170206, end: 20170209
  24. LINEZOLID. [Concomitant]
     Active Substance: LINEZOLID
     Indication: INFECTION PROPHYLAXIS
     Dosage: 600 MG, QD
     Route: 042
     Dates: start: 20170205, end: 20170214
  25. MYFORTIC [Suspect]
     Active Substance: MYCOPHENOLATE SODIUM
     Indication: IMMUNOSUPPRESSANT DRUG THERAPY
     Dosage: 1080 MG, QD
     Route: 065
     Dates: start: 20170213, end: 20170214
  26. COENZYME [Concomitant]
     Active Substance: UBIDECARENONE
     Indication: PRODUCT USED FOR UNKNOWN INDICATION
     Dosage: 15 MG, QD
     Route: 042
     Dates: start: 20170205, end: 20170214
  27. DEZOCINE [Concomitant]
     Active Substance: DEZOCINE
     Indication: WOUND COMPLICATION
     Dosage: 20 MG, QD
     Route: 042
     Dates: start: 20170206, end: 20170207
  28. TIGECYCLINE. [Concomitant]
     Active Substance: TIGECYCLINE
     Indication: INFECTION PROPHYLAXIS
     Dosage: 50 MG, QD
     Route: 042
     Dates: start: 20170205, end: 20170210
  29. SODIUM BICARBONATE. [Concomitant]
     Active Substance: SODIUM BICARBONATE
     Dosage: 1500 MG, TID
     Route: 048
     Dates: start: 20170216, end: 20170410
  30. RABEPRAZOLE SODIUM. [Concomitant]
     Active Substance: RABEPRAZOLE SODIUM
     Indication: PROPHYLAXIS
     Dosage: 10 MG, QD
     Route: 048
     Dates: start: 20170219, end: 20170415
  31. ETAMSYLATE [Concomitant]
     Active Substance: ETHAMSYLATE
     Indication: HAEMOSTASIS
     Dosage: 2000 MG, QD
     Route: 042
     Dates: start: 20170208, end: 20170208
  32. PREDNISONE. [Suspect]
     Active Substance: PREDNISONE
     Dosage: 30 MG, QD
     Route: 065
     Dates: start: 20170209, end: 20170209
  33. RIBOFLAVIN SODIUM PHOSPHATE [Concomitant]
     Indication: PRODUCT USED FOR UNKNOWN INDICATION
     Dosage: 40 MG, QD
     Route: 042
     Dates: start: 20170205, end: 20170214
  34. INDAPAMIDE. [Concomitant]
     Active Substance: INDAPAMIDE
     Indication: HYPERTENSION
     Dosage: 1.5 MG, QD
     Route: 042
     Dates: start: 20170206, end: 20170214
  35. MYFORTIC [Suspect]
     Active Substance: MYCOPHENOLATE SODIUM
     Dosage: 360 MG, QD
     Route: 065
     Dates: start: 20170412, end: 20170413
  36. MYFORTIC [Suspect]
     Active Substance: MYCOPHENOLATE SODIUM
     Dosage: 720 MG, QD
     Route: 065
     Dates: start: 20170414, end: 20170424
  37. MYFORTIC [Suspect]
     Active Substance: MYCOPHENOLATE SODIUM
     Dosage: 720 MG, QD
     Route: 065
     Dates: start: 20170425, end: 20180131
  38. PREDNISONE. [Suspect]
     Active Substance: PREDNISONE
     Dosage: 10 MG, QD
     Route: 065
     Dates: start: 20170211, end: 20170213
  39. ALBUMIN (HUMAN) [Concomitant]
     Active Substance: ALBUMIN HUMAN
     Indication: PRODUCT USED FOR UNKNOWN INDICATION
     Dosage: 100 ML, QD
     Route: 042
     Dates: start: 20170204, end: 20170204
  40. VITAMIN B [Concomitant]
     Active Substance: VITAMIN B
     Indication: PRODUCT USED FOR UNKNOWN INDICATION
     Dosage: 220 MG, QD
     Route: 042
     Dates: start: 20170205, end: 20170214
  41. PRAZOSIN. [Concomitant]
     Active Substance: PRAZOSIN
     Indication: HYPERTENSION
     Dosage: 1 MG, TID
     Route: 048
     Dates: start: 20170207, end: 20170208
  42. METOPROLOL SUCCINATE. [Concomitant]
     Active Substance: METOPROLOL SUCCINATE
     Dosage: 47.5 MG, BID
     Route: 048
     Dates: start: 20170214, end: 20170221
  43. METHIONINE [Concomitant]
     Active Substance: METHIONINE
     Indication: PRODUCT USED FOR UNKNOWN INDICATION
     Dosage: 220 MG, QD
     Route: 042
     Dates: start: 20170205, end: 20170214
  44. SODIUM BICARBONATE. [Concomitant]
     Active Substance: SODIUM BICARBONATE
     Indication: PRODUCT USED FOR UNKNOWN INDICATION
     Dosage: 2000 MG, TID
     Route: 048
     Dates: start: 20170410, end: 20170424

REACTIONS (13)
  - Blood urea increased [Unknown]
  - Pancreatitis acute [Recovering/Resolving]
  - Diabetes mellitus [Not Recovered/Not Resolved]
  - Hepatic function abnormal [Recovering/Resolving]
  - Hyperlipidaemia [Recovered/Resolved]
  - Hypokalaemia [Recovered/Resolved]
  - Diarrhoea [Recovering/Resolving]
  - Pyrexia [Recovered/Resolved]
  - Haemoglobin decreased [Unknown]
  - Anaemia [Recovered/Resolved]
  - Abdominal distension [Recovering/Resolving]
  - Pyrexia [Recovered/Resolved]
  - Thrombocytosis [Recovering/Resolving]

NARRATIVE: CASE EVENT DATE: 20170205
